FAERS Safety Report 6980933-2 (Version None)
Quarter: 2010Q3

REPORT INFORMATION
  Report Type: 
  Country: None (occurrence: None)
  Receive Date: 20100914
  Receipt Date: 20100907
  Transmission Date: 20110219
  Serious: Yes (Hospitalization)
  Sender: FDA-Public Use
  Company Number: A0880694A

PATIENT
  Sex: Female

DRUGS (2)
  1. TYKERB [Suspect]
     Indication: PRODUCT USED FOR UNKNOWN INDICATION
     Dosage: 1500MG PER DAY
     Route: 048
     Dates: start: 20100802
  2. DECADRON [Concomitant]

REACTIONS (5)
  - DISEASE PROGRESSION [None]
  - HEMIPARESIS [None]
  - METASTASES TO SPINE [None]
  - MOBILITY DECREASED [None]
  - SPINAL CORD COMPRESSION [None]
